FAERS Safety Report 8438743-5 (Version None)
Quarter: 2012Q2

REPORT INFORMATION
  Report Type: 
  Country: None (occurrence: None)
  Receive Date: 20120608
  Receipt Date: 20120524
  Transmission Date: 20120825
  Serious: No
  Sender: FDA-Public Use
  Company Number: TPA2012A03112

PATIENT
  Sex: Female

DRUGS (1)
  1. PREVACID [Suspect]

REACTIONS (1)
  - VISION BLURRED [None]
